FAERS Safety Report 14550577 (Version 1)
Quarter: 2018Q1

REPORT INFORMATION
  Report Type: Report from Study
  Country: US (occurrence: US)
  Receive Date: 20180219
  Receipt Date: 20180219
  Transmission Date: 20180509
  Serious: No
  Sender: FDA-Public Use
  Company Number: US-ACADIA PHARMACEUTICALS INC.-ACA-2018-007135

PATIENT
  Age: 71 Year
  Sex: Male

DRUGS (3)
  1. NUPLAZID [Suspect]
     Active Substance: PIMAVANSERIN TARTRATE
     Indication: DELUSION
  2. NUPLAZID [Suspect]
     Active Substance: PIMAVANSERIN TARTRATE
     Indication: PARKINSON^S DISEASE PSYCHOSIS
  3. NUPLAZID [Suspect]
     Active Substance: PIMAVANSERIN TARTRATE
     Indication: HALLUCINATION
     Dosage: 17 MG, QD
     Route: 065
     Dates: start: 20180101, end: 20180118

REACTIONS (7)
  - Paranoia [Recovering/Resolving]
  - Drug dose omission [Unknown]
  - Confusional state [Unknown]
  - Anger [Recovering/Resolving]
  - Hallucination [Unknown]
  - Frustration tolerance decreased [Unknown]
  - Underdose [Unknown]

NARRATIVE: CASE EVENT DATE: 20180111
